FAERS Safety Report 6908582-2 (Version None)
Quarter: 2010Q3

REPORT INFORMATION
  Report Type: 
  Country: None (occurrence: None)
  Receive Date: 20100708
  Receipt Date: 20090611
  Transmission Date: 20110219
  Serious: Yes (Hospitalization)
  Sender: FDA-Public Use
  Company Number: 2008022928

PATIENT
  Age: 52 Year
  Sex: Female
  Weight: 43.2 kg

DRUGS (2)
  1. CHANTIX [Suspect]
     Indication: SMOKING CESSATION THERAPY
     Dosage: 1 MG, 2X/DAY
     Dates: start: 20071001
  2. WELLBUTRIN [Concomitant]

REACTIONS (5)
  - NAUSEA [None]
  - OBSTRUCTIVE UROPATHY [None]
  - OROPHARYNGEAL PAIN [None]
  - PRODUCTIVE COUGH [None]
  - VOMITING [None]
